FAERS Safety Report 8486944-2 (Version None)
Quarter: 2012Q3

REPORT INFORMATION
  Report Type: 
  Country: None (occurrence: None)
  Receive Date: 20120704
  Receipt Date: 20120625
  Transmission Date: 20120928
  Serious: Yes (Other)
  Sender: FDA-Public Use
  Company Number: GB-BAUSCH-2012BL004080

PATIENT
  Age: 4 Week
  Sex: Male

DRUGS (6)
  1. CYCLOPENTOLATE HCL [Suspect]
     Indication: PRODUCT USED FOR UNKNOWN INDICATION
     Route: 047
  2. DEXAMETHASONE SODIUM PHOSPHATE [Suspect]
     Route: 047
  3. PREDNISOLONE SODIUM PHOSPHATE [Suspect]
     Route: 047
  4. LATANOPROST [Suspect]
     Route: 047
  5. AZARGA [Suspect]
     Route: 047
  6. CHLORAMPHENICOL [Suspect]
     Indication: POSTOPERATIVE CARE
     Route: 047

REACTIONS (3)
  - CORNEAL OEDEMA [None]
  - INTRAOCULAR PRESSURE INCREASED [None]
  - OFF LABEL USE [None]
